FAERS Safety Report 4651623-6 (Version None)
Quarter: 2005Q2

REPORT INFORMATION
  Report Type: 
  Country: None (occurrence: None)
  Receive Date: 20050404
  Receipt Date: 20041104
  Transmission Date: 20051028
  Serious: No
  Sender: FDA-Public Use
  Company Number: USA041183288

PATIENT
  Age: 18 Year
  Sex: Female

DRUGS (3)
  1. CYMBALTA [Suspect]
     Indication: DEPRESSION
     Dosage: 30 MG DAY
     Dates: start: 20041021, end: 20041103
  2. LEVBID (HYOSCYAMINE SULFATE) [Concomitant]
  3. WELLBUTRIN [Concomitant]

REACTIONS (2)
  - OVARIAN CYST RUPTURED [None]
  - URINARY RETENTION [None]
